FAERS Safety Report 19359539 (Version 2)
Quarter: 2021Q2

REPORT INFORMATION
  Report Type: Spontaneous
  Country: NL (occurrence: NL)
  Receive Date: 20210602
  Receipt Date: 20210607
  Transmission Date: 20210717
  Serious: Yes (Hospitalization)
  Sender: FDA-Public Use
  Company Number: NL-ACCORD-226875

PATIENT
  Sex: Male
  Weight: 80 kg

DRUGS (11)
  1. THIAMINE. [Concomitant]
     Active Substance: THIAMINE
     Dosage: 1 X PER DAY 1 PIECE
  2. ROSUVASTATIN. [Suspect]
     Active Substance: ROSUVASTATIN
     Indication: LOW DENSITY LIPOPROTEIN INCREASED
     Dosage: 1X PER DAY 1 PIECE
     Dates: start: 20200326, end: 20210114
  3. ACENOCOUMAROL [Concomitant]
     Active Substance: ACENOCOUMAROL
     Dosage: ACCORDING TO SCHEDULE
  4. POTASSIUM CHLORIDE. [Concomitant]
     Active Substance: POTASSIUM CHLORIDE
     Dosage: 75 MG / ML (1 MMOL / ML), 2 X PER DAY 30 MILLILITER
  5. PANTOPRAZOLE [Concomitant]
     Active Substance: PANTOPRAZOLE
     Dosage: 1 X PER DAY 1 PIECE
  6. TIOTROPIUM/TIOTROPIUM BROMIDE [Concomitant]
     Active Substance: TIOTROPIUM BROMIDE
     Dosage: 1 X PER DAY 1 PIECE
  7. THIAMINE. [Concomitant]
     Active Substance: THIAMINE
     Dosage: 1 X PER DAY 1 PIECE
  8. BECLOMETASONE/FORMOTEROL [Concomitant]
     Dosage: INHALATION POWDER 200/6, 2 X PER DAY 2 DOSES
  9. ASCORBIC ACID. [Concomitant]
     Active Substance: ASCORBIC ACID
     Dosage: 1 X PER DAY 1 PIECE
  10. LEVOCETIRIZINE/LEVOCETIRIZINE DIHYDROCHLORIDE [Concomitant]
     Active Substance: LEVOCETIRIZINE DIHYDROCHLORIDE
     Dosage: 1 X PER DAY 1 PIECE
  11. METFORMIN [Concomitant]
     Active Substance: METFORMIN HYDROCHLORIDE
     Dosage: 2 X PER DAY 2 PIECES

REACTIONS (1)
  - Renal tubular necrosis [Not Recovered/Not Resolved]
